FAERS Safety Report 5514404-7 (Version None)
Quarter: 2007Q4

REPORT INFORMATION
  Report Type: 
  Country: None (occurrence: None)
  Receive Date: 20071113
  Receipt Date: 20070510
  Transmission Date: 20080405
  Serious: No
  Sender: FDA-Public Use
  Company Number: A0650804A

PATIENT
  Age: 81 Year
  Sex: Male

DRUGS (12)
  1. COREG [Suspect]
     Indication: ANGINA PECTORIS
     Dosage: 6.25MG TWICE PER DAY
     Route: 048
     Dates: start: 20070101
  2. PRILOSEC [Concomitant]
  3. BUMEX [Concomitant]
  4. MICRO-K [Concomitant]
  5. LANOXIN [Concomitant]
  6. MONOPRIL [Concomitant]
  7. HYTRIN [Concomitant]
  8. AVODART [Concomitant]
  9. ASPIRIN [Concomitant]
  10. ZOCOR [Concomitant]
  11. COMBIVENT [Concomitant]
  12. ADVAIR DISKUS 100/50 [Concomitant]

REACTIONS (2)
  - DYSPNOEA [None]
  - PAIN [None]
